FAERS Safety Report 26168756 (Version 1)
Quarter: 2025Q4

REPORT INFORMATION
  Report Type: Spontaneous
  Country: EU (occurrence: EU)
  Receive Date: 20251217
  Receipt Date: 20251217
  Transmission Date: 20260117
  Serious: Yes (Hospitalization)
  Sender: AUROBINDO
  Company Number: EU-AEMPS-1785306

PATIENT
  Age: 88 Year
  Sex: Male

DRUGS (8)
  1. FUROSEMIDE [Suspect]
     Active Substance: FUROSEMIDE
     Indication: Hypertension
     Dosage: 40 MILLIGRAM, TWO TIMES A DAY
     Route: 061
     Dates: start: 20150324, end: 20240427
  2. CHLORTHALIDONE [Suspect]
     Active Substance: CHLORTHALIDONE
     Indication: Hypertension
     Dosage: 25.0 MG C/24 H
     Route: 061
     Dates: start: 20240404, end: 20240427
  3. ATORVASTATINA TEVA-RATIO 20 MG COMPRIMIDOS RECUBIERTOS CON PELICULA EF [Concomitant]
     Indication: Obesity
     Dosage: 20 MILLIGRAM
     Route: 061
  4. AMIODARONE HYDROCHLORIDE [Concomitant]
     Active Substance: AMIODARONE HYDROCHLORIDE
     Indication: Arrhythmia
     Dosage: 200 MILLIGRAM, ONCE A DAY
     Route: 061
     Dates: start: 20150501
  5. PARACETAMOL KERN PHARMA 650 mg COMPRIMIDOS EFG, 40 comprimidos [Concomitant]
     Indication: Osteoarthritis
     Dosage: 650 MILLIGRAM, 40 TABLETS
     Route: 061
     Dates: start: 20170911
  6. SINTROM [Concomitant]
     Active Substance: ACENOCOUMAROL
     Indication: Atrial fibrillation
     Dosage: 4 MILLIGRAM, TWO TIMES A DAY
     Route: 061
     Dates: start: 20150323
  7. LANSOPRAZOL TEVA-RATIOPHARM 30 mg CAPSULAS DURAS GASTRORRESISTENTES EF [Concomitant]
     Indication: Gastrooesophageal reflux disease
     Dosage: 30 MILLIGRAM
     Route: 061
  8. ALOPURINOL NORMON 100 mg COMPRIMIDOS EFG , 100 comprimidos [Concomitant]
     Indication: Blood uric acid increased
     Dosage: 100 MILLIGRAM
     Route: 061

REACTIONS (1)
  - Presyncope [Recovered/Resolved]

NARRATIVE: CASE EVENT DATE: 20240427
